FAERS Safety Report 5502324-3 (Version None)
Quarter: 2007Q4

REPORT INFORMATION
  Report Type: 
  Country: None (occurrence: None)
  Receive Date: 20071030
  Receipt Date: 20071022
  Transmission Date: 20080405
  Serious: Yes (Hospitalization, Other)
  Sender: FDA-Public Use
  Company Number: US-SHR-US-2007-039908

PATIENT
  Age: 27 Year
  Sex: Female
  Weight: 55 kg

DRUGS (1)
  1. MIRENA [Suspect]
     Indication: CONTRACEPTION
     Dosage: 20 A?G/DAY, CONT
     Route: 015
     Dates: start: 20070924, end: 20071019

REACTIONS (1)
  - TOXIC SHOCK SYNDROME STREPTOCOCCAL [None]
